FAERS Safety Report 9861027 (Version 1)
Quarter: 2014Q1

REPORT INFORMATION
  Report Type: Spontaneous
  Country: JP (occurrence: JP)
  Receive Date: 20140202
  Receipt Date: 20140202
  Transmission Date: 20141002
  Serious: No
  Sender: FDA-Public Use
  Company Number: JP-ALLERGAN-1303073US

PATIENT
  Sex: Female

DRUGS (2)
  1. BOTOX [Suspect]
     Indication: BLEPHAROSPASM
     Dosage: UNK UNK, SINGLE
     Route: 030
  2. RIVOTRIL [Concomitant]
     Route: 048

REACTIONS (2)
  - Feeling abnormal [Unknown]
  - Therapeutic response decreased [Unknown]
